FAERS Safety Report 6003600-0 (Version None)
Quarter: 2008Q4

REPORT INFORMATION
  Report Type: 
  Country: None (occurrence: None)
  Receive Date: 20081216
  Receipt Date: 20081204
  Transmission Date: 20090506
  Serious: Yes (Death, Hospitalization)
  Sender: FDA-Public Use
  Company Number: CZ-PFIZER INC-2008101490

PATIENT

DRUGS (5)
  1. SUNITINIB MALATE [Suspect]
     Dosage: 50 MG, 1X/DAY
     Route: 048
     Dates: start: 20081003
  2. METOPROLOL SUCCINATE [Concomitant]
     Route: 048
  3. CINNARIZINE [Concomitant]
     Route: 048
  4. WARFARIN [Concomitant]
     Dosage: 5 MG, UNK
     Route: 048
     Dates: end: 20081103
  5. CINNABENE [Concomitant]
     Route: 048

REACTIONS (1)
  - DEATH [None]
